FAERS Safety Report 8881184 (Version 1)
Quarter: 2012Q4

REPORT INFORMATION
  Report Type: 
  Country: DE (occurrence: DE)
  Receive Date: 20121031
  Receipt Date: 20121031
  Transmission Date: 20130627
  Serious: Yes (Death)
  Sender: FDA-Public Use
  Company Number: PHHY2012DE098694

PATIENT

DRUGS (3)
  1. BASILIXIMAB [Suspect]
     Indication: RENAL TRANSPLANT
     Dosage: 20 mg, day 0
  2. BASILIXIMAB [Suspect]
     Dosage: 20 mg, day 4
  3. PROGRAF [Concomitant]
     Indication: RENAL TRANSPLANT
     Dosage: 0.1 mg/kg, BID

REACTIONS (1)
  - Acute myocardial infarction [Fatal]
